FAERS Safety Report 10017769 (Version 1)
Quarter: 2014Q1

REPORT INFORMATION
  Report Type: Spontaneous
  Country: US (occurrence: US)
  Receive Date: 20140318
  Receipt Date: 20140318
  Transmission Date: 20141002
  Serious: No
  Sender: FDA-Public Use
  Company Number: US-BRISTOL-MYERS SQUIBB COMPANY-18837211

PATIENT
  Age: 68 Year
  Sex: Male

DRUGS (3)
  1. ERBITUX [Suspect]
     Indication: HEAD AND NECK CANCER
     Dates: start: 20130424
  2. BENADRYL [Concomitant]
     Indication: PREMEDICATION
  3. NORMAL SALINE [Concomitant]
     Indication: PREMEDICATION
     Dosage: 1DF:250CC

REACTIONS (3)
  - Speech disorder [Unknown]
  - Eating disorder [Unknown]
  - Dysphagia [Unknown]
